FAERS Safety Report 15535814 (Version 2)
Quarter: 2018Q4

REPORT INFORMATION
  Report Type: Spontaneous
  Country: US (occurrence: US)
  Receive Date: 20181022
  Receipt Date: 20181101
  Transmission Date: 20190205
  Serious: No
  Sender: FDA-Public Use
  Company Number: US-PFIZER INC-2018418843

PATIENT
  Age: 91 Year
  Sex: Female

DRUGS (1)
  1. XELJANZ [Suspect]
     Active Substance: TOFACITINIB CITRATE
     Dosage: 5 MG, ALTERNATE DAY (TAKING XELJANZ EVERY OTHER DAY)
     Dates: end: 20180920

REACTIONS (6)
  - Circumstance or information capable of leading to medication error [Unknown]
  - Drug withdrawal syndrome [Unknown]
  - Pain [Unknown]
  - Product use issue [Unknown]
  - Gastrointestinal disorder [Unknown]
  - Back pain [Unknown]
